FAERS Safety Report 15244937 (Version 1)
Quarter: 2018Q3

REPORT INFORMATION
  Report Type: Spontaneous
  Country: US (occurrence: US)
  Receive Date: 20180713
  Receipt Date: 20180713
  Transmission Date: 20181010
  Serious: Yes (Hospitalization)
  Sender: FDA-Public Use
  Company Number: None

PATIENT
  Sex: Female

DRUGS (14)
  1. TRAMADOL HCL [Concomitant]
     Active Substance: TRAMADOL HYDROCHLORIDE
  2. AMLODIPINE [Concomitant]
     Active Substance: AMLODIPINE BESYLATE
  3. GABAPENTIN. [Concomitant]
     Active Substance: GABAPENTIN
  4. ENOXAPRIN [Concomitant]
  5. DOK [Concomitant]
     Active Substance: DOCUSATE SODIUM
  6. MONTELUKAST [Concomitant]
     Active Substance: MONTELUKAST SODIUM
  7. OPSUMIT [Concomitant]
     Active Substance: MACITENTAN
  8. HYDROCO/APAP [Concomitant]
     Active Substance: ACETAMINOPHEN\HYDROCODONE
  9. SILDENAFIL. [Concomitant]
     Active Substance: SILDENAFIL
  10. FUROSEMIDE. [Concomitant]
     Active Substance: FUROSEMIDE
  11. METHYLPRED [Concomitant]
     Active Substance: METHYLPREDNISOLONE
  12. POTASSIUM CL [Concomitant]
     Active Substance: POTASSIUM CHLORIDE
  13. ACTEMRA [Suspect]
     Active Substance: TOCILIZUMAB
     Indication: RHEUMATOID ARTHRITIS
     Route: 058
     Dates: start: 20170126
  14. WARFARIN [Concomitant]
     Active Substance: WARFARIN

REACTIONS (1)
  - Therapy cessation [None]
